FAERS Safety Report 23690829 (Version 1)
Quarter: 2024Q2

REPORT INFORMATION
  Report Type: Spontaneous
  Country: IN (occurrence: IN)
  Receive Date: 20240401
  Receipt Date: 20240401
  Transmission Date: 20240716
  Serious: Yes (Hospitalization)
  Sender: FDA-Public Use
  Company Number: IN-CIPLA LTD.-2024IN03029

PATIENT

DRUGS (4)
  1. BUDESONIDE [Suspect]
     Active Substance: BUDESONIDE
     Indication: Asthma
     Dosage: 400 MG (2 PUFFS OF 200 MG), TWICE DAILY
     Dates: start: 20230127, end: 20230127
  2. BUDESONIDE [Suspect]
     Active Substance: BUDESONIDE
     Dosage: UNK (PLASTIC-COATED ONES)
  3. BUDESONIDE\FORMOTEROL [Suspect]
     Active Substance: BUDESONIDE\FORMOTEROL
     Indication: Asthma
     Dosage: UNK
     Route: 065
     Dates: start: 2022, end: 202301
  4. DEVICE [Suspect]
     Active Substance: DEVICE
     Indication: Asthma
     Dosage: UNK
     Route: 065

REACTIONS (7)
  - Tachycardia [Recovered/Resolved]
  - Palpitations [Recovered/Resolved]
  - Hypertension [Recovering/Resolving]
  - Product quality issue [Unknown]
  - Product packaging issue [Unknown]
  - Device material issue [Unknown]
  - Device colour issue [Unknown]

NARRATIVE: CASE EVENT DATE: 20230101
